FAERS Safety Report 8997183 (Version 1)
Quarter: 2012Q4

REPORT INFORMATION
  Report Type: Spontaneous
  Country: DK (occurrence: None)
  Receive Date: 20121221
  Receipt Date: 20121221
  Transmission Date: 20130627
  Serious: Yes (Life-Threatening)
  Sender: FDA-Public Use
  Company Number: 2012MA014201

PATIENT
  Age: 48 Year
  Sex: Male

DRUGS (1)
  1. GEMCITABINE HCL [Suspect]
     Indication: HEAD AND NECK CANCER
     Route: 042
     Dates: start: 20120828, end: 20120828

REACTIONS (4)
  - Hypotension [None]
  - Hypoglycaemia [None]
  - Dizziness [None]
  - Somnolence [None]
